FAERS Safety Report 8289256-5 (Version None)
Quarter: 2012Q2

REPORT INFORMATION
  Report Type: 
  Country: None (occurrence: None)
  Receive Date: 20120417
  Receipt Date: 20120412
  Transmission Date: 20120825
  Serious: Yes (Other)
  Sender: FDA-Public Use
  Company Number: GXKR2012DE001440

PATIENT
  Age: 54 Year
  Sex: Male

DRUGS (1)
  1. VENLAFAXINE [Suspect]
     Indication: MAJOR DEPRESSION
     Dosage: 1 DF, UNK

REACTIONS (3)
  - MUSCLE RUPTURE [None]
  - FALL [None]
  - TENDON RUPTURE [None]
